FAERS Safety Report 6918086-9 (Version None)
Quarter: 2010Q3

REPORT INFORMATION
  Report Type: 
  Country: None (occurrence: None)
  Receive Date: 20100806
  Receipt Date: 20100719
  Transmission Date: 20110219
  Serious: Yes (Hospitalization)
  Sender: FDA-Public Use
  Company Number: 2010P1000405

PATIENT
  Age: 68 Year
  Sex: Male

DRUGS (2)
  1. WARFARIN SODIUM [Suspect]
     Indication: AORTIC VALVE REPLACEMENT
     Dosage: 7.5 MG; QD; PO
     Route: 048
  2. CAPTOPRIL [Concomitant]

REACTIONS (17)
  - ACTIVATED PARTIAL THROMBOPLASTIN TIME PROLONGED [None]
  - BACK INJURY [None]
  - BLOOD LACTATE DEHYDROGENASE INCREASED [None]
  - CARDIAC MURMUR [None]
  - FALL [None]
  - HAEMATOCRIT DECREASED [None]
  - HAEMATOMA [None]
  - HAEMOGLOBIN DECREASED [None]
  - HEART RATE INCREASED [None]
  - INTERNATIONAL NORMALISED RATIO INCREASED [None]
  - LEFT VENTRICULAR HYPERTROPHY [None]
  - MONOPARESIS [None]
  - MUSCLE HAEMORRHAGE [None]
  - NERVE COMPRESSION [None]
  - PAIN [None]
  - PARAESTHESIA [None]
  - RETROPERITONEAL HAEMATOMA [None]
